FAERS Safety Report 24630480 (Version 7)
Quarter: 2025Q3

REPORT INFORMATION
  Report Type: Spontaneous
  Country: US (occurrence: US)
  Receive Date: 20241118
  Receipt Date: 20250822
  Transmission Date: 20251021
  Serious: Yes (Hospitalization, Other)
  Sender: ROCHE
  Company Number: US-ROCHE-10000133717

PATIENT
  Age: 47 Year
  Sex: Female
  Weight: 68.04 kg

DRUGS (4)
  1. OCREVUS [Suspect]
     Active Substance: OCRELIZUMAB
     Indication: Relapsing-remitting multiple sclerosis
     Dosage: DATE OF SERVICE: 05-MAR-2024, 10/SEP/2024.
     Route: 042
     Dates: start: 201912
  2. GABAPENTIN [Concomitant]
     Active Substance: GABAPENTIN
     Indication: Pain
     Dosage: 600MG AT NIGHT
     Route: 048
  3. GABAPENTIN [Concomitant]
     Active Substance: GABAPENTIN
     Route: 048
  4. AMOXICILLIN [Concomitant]
     Active Substance: AMOXICILLIN
     Indication: Cystitis
     Route: 048
     Dates: end: 20241113

REACTIONS (9)
  - Urinary tract infection [Recovering/Resolving]
  - Respiratory tract infection [Unknown]
  - Abdominal pain [Not Recovered/Not Resolved]
  - Pyrexia [Not Recovered/Not Resolved]
  - Cystitis [Not Recovered/Not Resolved]
  - Fungal infection [Not Recovered/Not Resolved]
  - Smear cervix abnormal [Recovered/Resolved]
  - Heart rate increased [Recovered/Resolved]
  - Bladder perforation [Unknown]

NARRATIVE: CASE EVENT DATE: 20241125
